FAERS Safety Report 9525448 (Version 1)
Quarter: 2013Q1

REPORT INFORMATION
  Report Type: Spontaneous
  Country: US (occurrence: None)
  Receive Date: 20130314
  Receipt Date: 20130314
  Transmission Date: 20140127
  Serious: No
  Sender: FDA-Public Use
  Company Number: E7389-03270-SPO-US

PATIENT
  Sex: Female

DRUGS (1)
  1. HALAVEN [Suspect]
     Indication: BREAST CANCER
     Dosage: UNKNOWN, INTRAVENOUS INFUSION
     Route: 042
     Dates: start: 2012

REACTIONS (2)
  - Neuropathy peripheral [None]
  - Sensory disturbance [None]
